FAERS Safety Report 4394091-4 (Version None)
Quarter: 2004Q3

REPORT INFORMATION
  Report Type: 
  Country: None (occurrence: None)
  Receive Date: 20040708
  Receipt Date: 20040708
  Transmission Date: 20050211
  Serious: Yes (Death)
  Sender: FDA-Public Use
  Company Number: None

PATIENT
  Age: 79 Year
  Sex: Female

DRUGS (4)
  1. ENOXAPARIN SODIUM [Suspect]
     Indication: CEREBRAL ISCHAEMIA
     Dosage: 1 MG/KG BID SC
     Route: 058
  2. ENOXAPARIN SODIUM [Suspect]
     Indication: CEREBROVASCULAR ACCIDENT
     Dosage: 1 MG/KG BID SC
     Route: 058
  3. WARFARIN SODIUM [Suspect]
     Indication: CEREBRAL ISCHAEMIA
  4. WARFARIN SODIUM [Suspect]
     Indication: CEREBROVASCULAR ACCIDENT

REACTIONS (5)
  - BRADYCARDIA [None]
  - BRAIN DEATH [None]
  - ECCHYMOSIS [None]
  - HAEMATOMA [None]
  - HAEMORRHAGIC STROKE [None]
